FAERS Safety Report 5009854-1 (Version None)
Quarter: 2006Q2

REPORT INFORMATION
  Report Type: 
  Country: None (occurrence: None)
  Receive Date: 20060523
  Receipt Date: 20060523
  Transmission Date: 20061013
  Serious: Yes (Other)
  Sender: FDA-Public Use
  Company Number: None

PATIENT
  Age: 48 Year
  Sex: Female
  Weight: 87.9978 kg

DRUGS (2)
  1. OXYCODONE ER 10 MG [Suspect]
     Indication: BACK PAIN
     Dosage: 10 MG Q 8 H ONE-TWO- ONE PO
     Route: 048
     Dates: start: 20060425, end: 20060428
  2. OXYCODONE ER 20 MG [Suspect]
     Dosage: 20 MG Q8H PO
     Route: 048

REACTIONS (5)
  - DYSPNOEA [None]
  - OEDEMA PERIPHERAL [None]
  - PITTING OEDEMA [None]
  - SWOLLEN TONGUE [None]
  - WHEEZING [None]
